FAERS Safety Report 12717735 (Version 3)
Quarter: 2016Q4

REPORT INFORMATION
  Report Type: Spontaneous
  Country: US (occurrence: US)
  Receive Date: 20160906
  Receipt Date: 20161021
  Transmission Date: 20170207
  Serious: Yes (Other)
  Sender: FDA-Public Use
  Company Number: US-BAYER-2016-169004

PATIENT
  Age: 42 Year
  Sex: Female
  Weight: 131.7 kg

DRUGS (8)
  1. PROVERA [Concomitant]
     Active Substance: MEDROXYPROGESTERONE ACETATE
     Dosage: 150 MG, PRN
     Route: 030
  2. COLACE [Concomitant]
     Active Substance: DOCUSATE SODIUM
     Dosage: 100 MG, HS
     Route: 048
  3. MIRENA [Suspect]
     Active Substance: LEVONORGESTREL
     Indication: MENORRHAGIA
     Dosage: 20 MCG/24HR, CONT
     Route: 015
     Dates: start: 20160801, end: 201608
  4. MIRENA [Suspect]
     Active Substance: LEVONORGESTREL
     Indication: CONTRACEPTION
  5. LISINOPRIL. [Concomitant]
     Active Substance: LISINOPRIL
     Dosage: 5 MG, TAKE EVERYDAY
  6. OMEGA-3 [DOCOSAHEXANOIC ACID,EICOSAPENTAENOIC ACID] [Concomitant]
     Dosage: 1000 MG (120-80 MG) TAKE 3 CAPS EVERY DAY
     Route: 048
  7. IMITREX [Concomitant]
     Active Substance: SUMATRIPTAN SUCCINATE
     Indication: MIGRAINE
     Dosage: 1 TAB AT ONSET OF HEADACHE, REPEAT 1 IN 2 HOURS IF NEEDED
     Route: 048
  8. AZITHROMYCIN ANHYDROUS. [Concomitant]
     Active Substance: AZITHROMYCIN ANHYDROUS
     Dosage: 250 MG, UNK

REACTIONS (14)
  - Menometrorrhagia [None]
  - Device expulsion [None]
  - Dyspnoea [None]
  - Abdominal pain [None]
  - Genital haemorrhage [Not Recovered/Not Resolved]
  - Asthenia [None]
  - Dehydration [None]
  - Vaginal haemorrhage [None]
  - Ovarian cyst [None]
  - Medical device pain [None]
  - Haemoptysis [None]
  - Somnolence [None]
  - Abdominal tenderness [None]
  - Device defective [None]

NARRATIVE: CASE EVENT DATE: 201608
